FAERS Safety Report 19259917 (Version 1)
Quarter: 2021Q2

REPORT INFORMATION
  Report Type: Spontaneous
  Country: AR (occurrence: AR)
  Receive Date: 20210514
  Receipt Date: 20210514
  Transmission Date: 20210717
  Serious: Yes (Other)
  Sender: FDA-Public Use
  Company Number: AR-PFIZER INC-2021498606

PATIENT
  Age: 82 Year
  Sex: Male

DRUGS (1)
  1. SUTENT [Suspect]
     Active Substance: SUNITINIB MALATE
     Indication: METASTATIC RENAL CELL CARCINOMA
     Dosage: 25 MG
     Dates: start: 20191222, end: 20210203

REACTIONS (2)
  - Neoplasm progression [Unknown]
  - Hallucination [Unknown]

NARRATIVE: CASE EVENT DATE: 20210203
